FAERS Safety Report 8169529-7 (Version None)
Quarter: 2012Q1

REPORT INFORMATION
  Report Type: 
  Country: None (occurrence: None)
  Receive Date: 20120222
  Receipt Date: 20120207
  Transmission Date: 20120608
  Serious: Yes (Hospitalization)
  Sender: FDA-Public Use
  Company Number: 2005001460

PATIENT
  Age: 60 Year
  Sex: Female
  Weight: 80 kg

DRUGS (3)
  1. PACLITAXEL [Suspect]
     Indication: BREAST CANCER
     Dosage: 80 MG/M2 OVER 1 HR, 1 IN 28 DAYS, IV DRIP
     Route: 041
     Dates: start: 20050504
  2. TRASTUZUMAB (TRASTUZUMAB) INJECTION [Suspect]
     Indication: BREAST CANCER
     Dosage: 2 MG/KG OVER 30 MIN, 1 IN 28 DAYS, IV NOS
     Route: 042
     Dates: start: 20050504
  3. TARCEVA [Suspect]
     Indication: BREAST CANCER
     Dosage: 100 MG, UID/QD, ORAL
     Route: 048
     Dates: start: 20050504

REACTIONS (14)
  - OFF LABEL USE [None]
  - DIARRHOEA [None]
  - FATIGUE [None]
  - TENDERNESS [None]
  - NAUSEA [None]
  - CANDIDIASIS [None]
  - LYMPHOEDEMA [None]
  - CELLULITIS [None]
  - OEDEMA PERIPHERAL [None]
  - ERYTHEMA [None]
  - PAIN IN EXTREMITY [None]
  - INFECTION [None]
  - VOMITING [None]
  - DEHYDRATION [None]
